FAERS Safety Report 12001613 (Version 1)
Quarter: 2016Q1

REPORT INFORMATION
  Report Type: Other
  Country: US (occurrence: US)
  Receive Date: 20160204
  Receipt Date: 20160204
  Transmission Date: 20160526
  Serious: Yes (Other)
  Sender: FDA-Public Use
  Company Number: US-COL_21899_2016

PATIENT
  Age: 21 Year
  Sex: Female

DRUGS (1)
  1. COLGATE TOOTHPASTE [Suspect]
     Active Substance: SODIUM MONOFLUOROPHOSPHATE
     Indication: DENTAL DISORDER PROPHYLAXIS
     Dosage: COVERS WHOLE HEAD OF TOOTHBRUSH/TWICE A DAY/
     Route: 048

REACTIONS (1)
  - Ovarian cancer [Recovered/Resolved]

NARRATIVE: CASE EVENT DATE: 2013
